FAERS Safety Report 8241181-1 (Version None)
Quarter: 2012Q1

REPORT INFORMATION
  Report Type: 
  Country: None (occurrence: None)
  Receive Date: 20120328
  Receipt Date: 20120323
  Transmission Date: 20120608
  Serious: Yes (Other)
  Sender: FDA-Public Use
  Company Number: US-PFIZER INC-2012055489

PATIENT
  Sex: Female

DRUGS (9)
  1. LYRICA [Suspect]
     Dosage: 100 MG, UNK
  2. DIAMOX [Concomitant]
     Dosage: 500 MG, Q12 (EVERY 12 HOURS)
  3. DIAMOX [Concomitant]
     Dosage: 250 MG, QHS (EVERY NIGHT AT BEDTIME)
  4. CELEXA [Concomitant]
     Dosage: 30 MG, A DAY
  5. LYRICA [Suspect]
     Dosage: 150 MG, QHS (EVERY NIGHT AT BEDTIME)
  6. TOPAMAX [Concomitant]
     Dosage: 75 MG, QHS (EVERY NIGHT AT BEDTIME)
  7. LYRICA [Suspect]
     Dosage: 150 MG, QAM (EVERY DAY BEFORE NOON)
  8. COMPAZINE [Concomitant]
     Dosage: 10 MG, Q12 (EVERY 12 HOURS)
  9. MEDROXYPROGESTERONE [Concomitant]
     Dosage: 10 MG, EVERY DAY

REACTIONS (2)
  - MALAISE [None]
  - BRAIN OEDEMA [None]
